FAERS Safety Report 18336468 (Version 1)
Quarter: 2020Q4

REPORT INFORMATION
  Report Type: Spontaneous
  Country: US (occurrence: US)
  Receive Date: 20201001
  Receipt Date: 20201001
  Transmission Date: 20210113
  Serious: Yes (Other)
  Sender: FDA-Public Use
  Company Number: US-BAUSCH-BL-2020-027586

PATIENT
  Sex: Female

DRUGS (1)
  1. MURO 128 [Suspect]
     Active Substance: SODIUM CHLORIDE
     Indication: CORNEAL OEDEMA
     Dosage: IN THE RIGHT EYE
     Route: 047

REACTIONS (5)
  - Vision blurred [Recovering/Resolving]
  - Surgery [Unknown]
  - Eye irritation [Unknown]
  - Therapeutic response unexpected [Unknown]
  - Intraocular pressure test abnormal [Unknown]
